FAERS Safety Report 5267930-2 (Version None)
Quarter: 2007Q1

REPORT INFORMATION
  Report Type: 
  Country: None (occurrence: None)
  Receive Date: 20061213
  Receipt Date: 20060403
  Transmission Date: 20070707
  Serious: Yes (Hospitalization)
  Sender: FDA-Public Use
  Company Number: 2005UW09045

PATIENT
  Age: 54 Year
  Sex: Female
  Weight: 119.2 kg

DRUGS (4)
  1. NOLVADEX [Suspect]
     Indication: BREAST CANCER FEMALE
     Dosage: 20 MG QD PO
     Route: 048
     Dates: start: 20020114
  2. LOTENSIN [Concomitant]
  3. LIPITOR [Concomitant]
  4. GLUCOPHAGE [Concomitant]

REACTIONS (1)
  - ENDOMETRIAL HYPERTROPHY [None]
